FAERS Safety Report 9825656 (Version 2)
Quarter: 2013Q4

REPORT INFORMATION
  Report Type: Spontaneous
  Country: US (occurrence: None)
  Receive Date: 20131223
  Receipt Date: 20131223
  Transmission Date: 20140711
  Serious: Yes (Other)
  Sender: FDA-Public Use
  Company Number: 221159LEO

PATIENT
  Age: 73 Year
  Sex: Male

DRUGS (1)
  1. PICATO GEL [Suspect]
     Indication: ACTINIC KERATOSIS
     Route: 061
     Dates: start: 20130405, end: 20130405

REACTIONS (7)
  - Product formulation issue [None]
  - Application site erythema [None]
  - Application site pain [None]
  - Application site pain [None]
  - Application site vesicles [None]
  - Incorrect drug administration duration [None]
  - Incorrect product storage [None]
